FAERS Safety Report 5235984-5 (Version None)
Quarter: 2007Q1

REPORT INFORMATION
  Report Type: 
  Country: None (occurrence: None)
  Receive Date: 20061208
  Receipt Date: 20060519
  Transmission Date: 20070707
  Serious: Yes (Other)
  Sender: FDA-Public Use
  Company Number: 2006UW09877

PATIENT
  Age: 77 Year
  Sex: Male
  Weight: 65.77 kg

DRUGS (10)
  1. CRESTOR [Suspect]
     Indication: BLOOD CHOLESTEROL INCREASED
     Dosage: 10 MG PO
     Route: 048
     Dates: start: 20060201
  2. AXID [Concomitant]
  3. DIPYRIDAMOLE [Concomitant]
  4. MAXIDEX [Concomitant]
  5. VASOTEC [Concomitant]
  6. NORVASC [Concomitant]
  7. PREDNISONE [Concomitant]
  8. GLIPIZIDE [Concomitant]
  9. STALEVO 100 [Concomitant]
  10. VITAMIN B COMPLEX CAP [Concomitant]

REACTIONS (2)
  - CHROMATURIA [None]
  - MUSCLE SPASMS [None]
